FAERS Safety Report 18980511 (Version 2)
Quarter: 2021Q2

REPORT INFORMATION
  Report Type: Spontaneous
  Country: US (occurrence: US)
  Receive Date: 20210308
  Receipt Date: 20210624
  Transmission Date: 20210717
  Serious: Yes (Life-Threatening, Hospitalization, Other)
  Sender: FDA-Public Use
  Company Number: US-PFIZER INC-2020243311

PATIENT
  Age: 80 Year
  Sex: Male
  Weight: 81.63 kg

DRUGS (9)
  1. VYNDAMAX [Suspect]
     Active Substance: TAFAMIDIS
     Indication: CARDIAC AMYLOIDOSIS
     Dosage: 61 MG ONCE A DAY
     Route: 048
     Dates: start: 201906
  2. SYNTHROID [Concomitant]
     Active Substance: LEVOTHYROXINE SODIUM
     Indication: HYPOTHYROIDISM
     Dosage: 175 UG, DAILYBEFORE BREAKFAST
     Route: 048
     Dates: end: 20210128
  3. ELIQUIS [Concomitant]
     Active Substance: APIXABAN
     Indication: ATRIAL FIBRILLATION
     Dosage: 5 MG, EVERY 12 HOURS
     Route: 048
     Dates: end: 20210128
  4. TAFAMIDIS [Concomitant]
     Active Substance: TAFAMIDIS MEGLUMINE
     Indication: AMYLOIDOSIS SENILE
     Dosage: 61 MG, DAILY
  5. ELIQUIS [Concomitant]
     Active Substance: APIXABAN
     Indication: EMBOLISM
     Dosage: UNK
  6. VELTASSA [Suspect]
     Active Substance: PATIROMER
     Indication: HYPERKALAEMIA
     Dosage: 8.4 G, DAILY
     Route: 048
     Dates: start: 20201220, end: 20210129
  7. LASIX [Concomitant]
     Active Substance: FUROSEMIDE
     Indication: OEDEMA
     Dosage: 40 MG (3 TIMES A WEEK (MONDAY (MON), WEDNESDAY (WED), FRIDAY (FRI))
     Route: 048
     Dates: end: 20210127
  8. LIPITOR [Concomitant]
     Active Substance: ATORVASTATIN CALCIUM
     Indication: BLOOD CHOLESTEROL INCREASED
     Dosage: 20 MG, DAILY
     Route: 048
     Dates: end: 20210126
  9. ZYLOPRIM [Concomitant]
     Active Substance: ALLOPURINOL
     Dosage: 300 MG, DAILY
     Route: 048
     Dates: end: 20210127

REACTIONS (43)
  - Emotional distress [Unknown]
  - Hepatic cirrhosis [Unknown]
  - Blood urea increased [Unknown]
  - Blood bilirubin increased [Unknown]
  - Prothrombin time prolonged [Unknown]
  - Bone disorder [Unknown]
  - Blood pH decreased [Unknown]
  - PCO2 decreased [Unknown]
  - Venous oxygen saturation increased [Unknown]
  - Intestinal ulcer perforation [Unknown]
  - Bradycardia [Unknown]
  - Pneumoperitoneum [Unknown]
  - International normalised ratio increased [Unknown]
  - Renal cyst [Unknown]
  - Cardiac arrest [Recovered/Resolved]
  - Peritonitis [Unknown]
  - Hepatitis [Unknown]
  - Nephrolithiasis [Unknown]
  - Abdominal pain [Unknown]
  - Constipation [Unknown]
  - Blood sodium decreased [Unknown]
  - Troponin I increased [Unknown]
  - PO2 increased [Unknown]
  - Gastric ulcer perforation [Recovering/Resolving]
  - Cardiomyopathy [Unknown]
  - Gastrointestinal wall thickening [Unknown]
  - Abdominal lymphadenopathy [Unknown]
  - Lung disorder [Unknown]
  - Gallbladder enlargement [Unknown]
  - Red cell distribution width increased [Unknown]
  - Blood glucose increased [Unknown]
  - Cardiac arrest [Recovering/Resolving]
  - Gastrointestinal oedema [Unknown]
  - Hypotonia [Unknown]
  - Aortic arteriosclerosis [Unknown]
  - Ascites [Unknown]
  - Asthenia [Unknown]
  - Weight decreased [Unknown]
  - Cardiomegaly [Unknown]
  - Blood creatinine increased [Unknown]
  - Blood alkaline phosphatase increased [Unknown]
  - Prostatomegaly [Unknown]
  - Gastrointestinal disorder [Unknown]

NARRATIVE: CASE EVENT DATE: 20201209
